FAERS Safety Report 16409944 (Version 3)
Quarter: 2020Q2

REPORT INFORMATION
  Report Type: Spontaneous
  Country: US (occurrence: US)
  Receive Date: 20190610
  Receipt Date: 20200415
  Transmission Date: 20200713
  Serious: Yes (Death, Hospitalization, Other)
  Sender: FDA-Public Use
  Company Number: US-JNJFOC-20190610201

PATIENT
  Age: 80 Year
  Sex: Male
  Weight: 74.8 kg

DRUGS (8)
  1. POTASSIUM CHLORIDE. [Concomitant]
     Active Substance: POTASSIUM CHLORIDE
     Indication: BLOOD COUNT ABNORMAL
     Route: 065
     Dates: start: 201903, end: 20190601
  2. PREDNISONE. [Concomitant]
     Active Substance: PREDNISONE
     Indication: PERIPHERAL SWELLING
     Route: 065
     Dates: start: 201904, end: 20190601
  3. PREDNISONE. [Concomitant]
     Active Substance: PREDNISONE
     Route: 065
     Dates: start: 20190514, end: 20190529
  4. ZYTIGA [Suspect]
     Active Substance: ABIRATERONE ACETATE
     Dosage: 250 MG X 4
     Route: 048
     Dates: start: 20190514, end: 20190522
  5. FUROSEMIDE. [Concomitant]
     Active Substance: FUROSEMIDE
     Indication: PERIPHERAL SWELLING
     Dosage: END DATE: //2019
     Route: 065
     Dates: start: 201708
  6. LEUPROLIDE ACETATE. [Concomitant]
     Active Substance: LEUPROLIDE ACETATE
     Indication: PRODUCT USED FOR UNKNOWN INDICATION
     Dosage: THERAPY STOPPED ON 01/JUN
     Dates: start: 201001
  7. OMEPRAZOLE. [Concomitant]
     Active Substance: OMEPRAZOLE
     Indication: GASTRIC ULCER
     Dosage: END DATE: //2019
     Route: 065
     Dates: start: 2008
  8. ZYTIGA [Suspect]
     Active Substance: ABIRATERONE ACETATE
     Indication: PROSTATE CANCER METASTATIC
     Dosage: 250 MG X 4
     Route: 048
     Dates: start: 20190516, end: 20190601

REACTIONS (6)
  - Fall [Unknown]
  - Cerebral haemorrhage [Fatal]
  - Melaena [Unknown]
  - Abdominal pain [Unknown]
  - Disseminated intravascular coagulation [Unknown]
  - Head injury [Unknown]

NARRATIVE: CASE EVENT DATE: 20190529
